FAERS Safety Report 24124534 (Version 1)
Quarter: 2024Q3

REPORT INFORMATION
  Report Type: Report from Study
  Country: CA (occurrence: None)
  Receive Date: 20240723
  Receipt Date: 20240723
  Transmission Date: 20241017
  Serious: Yes (Other)
  Sender: ASTRAZENECA
  Company Number: 2023A144418

PATIENT
  Sex: Male
  Weight: 102 kg

DRUGS (1)
  1. IMFINZI [Suspect]
     Active Substance: DURVALUMAB
     Indication: Bile duct cancer
     Route: 042
     Dates: start: 20230207

REACTIONS (6)
  - Deep vein thrombosis [Unknown]
  - Arthralgia [Recovering/Resolving]
  - Diarrhoea [Recovered/Resolved]
  - Pain [Unknown]
  - Non-pitting oedema [Unknown]
  - Pain in extremity [Not Recovered/Not Resolved]
